FAERS Safety Report 13264720 (Version 2)
Quarter: 2017Q1

REPORT INFORMATION
  Report Type: Report from Study
  Country: US (occurrence: US)
  Receive Date: 20170223
  Receipt Date: 20170331
  Transmission Date: 20170428
  Serious: Yes (Hospitalization, Other)
  Sender: FDA-Public Use
  Company Number: US-SAOL THERAPEUTICS-2017SAO00346

PATIENT
  Age: 46 Year
  Sex: Female
  Weight: 86.17 kg

DRUGS (7)
  1. BACLOFEN. [Suspect]
     Active Substance: BACLOFEN
  2. GILENYA [Suspect]
     Active Substance: FINGOLIMOD HYDROCHLORIDE
     Indication: MULTIPLE SCLEROSIS
     Dosage: 0.5 MG, 1X/DAY
     Route: 048
     Dates: start: 20150709, end: 20161019
  3. BACLOFEN. [Concomitant]
     Active Substance: BACLOFEN
     Dosage: 10 MG, 2X/DAY
     Route: 048
  4. BACLOFEN. [Concomitant]
     Active Substance: BACLOFEN
     Dosage: 20 MG, 1X/DAY
     Route: 048
  5. TRAMADOL. [Concomitant]
     Active Substance: TRAMADOL
  6. VITAMIN D [Concomitant]
     Active Substance: CHOLECALCIFEROL
  7. CLONAZEPAM. [Concomitant]
     Active Substance: CLONAZEPAM

REACTIONS (5)
  - Post procedural bile leak [Unknown]
  - Acute kidney injury [Unknown]
  - Leukopenia [Unknown]
  - Cholecystectomy [Unknown]
  - Pain [Unknown]

NARRATIVE: CASE EVENT DATE: 201605
